FAERS Safety Report 5683035-0 (Version None)
Quarter: 2008Q1

REPORT INFORMATION
  Report Type: 
  Country: None (occurrence: None)
  Receive Date: 20080327
  Receipt Date: 20080318
  Transmission Date: 20080703
  Serious: Yes (Other)
  Sender: FDA-Public Use
  Company Number: PHNU2008US01326

PATIENT
  Age: 73 Year
  Sex: Female

DRUGS (2)
  1. ZOMETA [Suspect]
     Route: 042
     Dates: start: 20040401, end: 20050601
  2. FEMARA [Concomitant]
     Dosage: 2.5 MG, QD
     Route: 048
     Dates: start: 20040401

REACTIONS (12)
  - DENTAL TREATMENT [None]
  - GINGIVAL INFECTION [None]
  - GINGIVAL SWELLING [None]
  - IMPAIRED HEALING [None]
  - JAW FRACTURE [None]
  - MASTICATION DISORDER [None]
  - ORAL SURGERY [None]
  - OSTEONECROSIS [None]
  - OSTEOSYNTHESIS [None]
  - SEQUESTRECTOMY [None]
  - SUTURE INSERTION [None]
  - TOOTH EXTRACTION [None]
